FAERS Safety Report 4683930-5 (Version None)
Quarter: 2005Q2

REPORT INFORMATION
  Report Type: 
  Country: None (occurrence: None)
  Receive Date: 20050607
  Receipt Date: 20050224
  Transmission Date: 20051028
  Serious: Yes (Death, Hospitalization)
  Sender: FDA-Public Use
  Company Number: US-MERCK-0502USA03473

PATIENT
  Age: 65 Year
  Sex: Male

DRUGS (7)
  1. VIOXX [Suspect]
     Indication: BACK PAIN
     Route: 048
     Dates: start: 19990101, end: 20030216
  2. VIOXX [Suspect]
     Indication: PAIN IN EXTREMITY
     Route: 048
     Dates: start: 19990101, end: 20030216
  3. AMBIEN [Concomitant]
     Route: 065
  4. PRINIVIL [Concomitant]
     Route: 065
  5. CLONAZEPAM [Concomitant]
     Route: 065
  6. ZOCOR [Concomitant]
     Route: 065
  7. NEURONTIN [Concomitant]
     Route: 065
     Dates: start: 19991101, end: 20000501

REACTIONS (17)
  - ANXIETY [None]
  - BLOOD CHOLESTEROL INCREASED [None]
  - CARDIAC DISORDER [None]
  - CEREBROVASCULAR ACCIDENT [None]
  - DEATH [None]
  - DEPRESSION [None]
  - DISTURBANCE IN ATTENTION [None]
  - EMOTIONAL DISTRESS [None]
  - FLUID RETENTION [None]
  - HYPERTENSION [None]
  - LEG AMPUTATION [None]
  - PANIC ATTACK [None]
  - POOR PERIPHERAL CIRCULATION [None]
  - SLEEP DISORDER [None]
  - STRESS [None]
  - SUICIDAL IDEATION [None]
  - THROMBOSIS [None]
